FAERS Safety Report 6917507-5 (Version None)
Quarter: 2010Q3

REPORT INFORMATION
  Report Type: 
  Country: None (occurrence: None)
  Receive Date: 20100805
  Receipt Date: 20100723
  Transmission Date: 20110219
  Serious: Yes (Hospitalization)
  Sender: FDA-Public Use
  Company Number: BVT-000596

PATIENT
  Age: 60 Year
  Sex: Female

DRUGS (10)
  1. KINERET [Suspect]
     Indication: STILL'S DISEASE ADULT ONSET
     Dosage: (100 MG QD SUBCUTANEOUS)
     Route: 058
     Dates: start: 20100721, end: 20100721
  2. PREDNISONE [Concomitant]
  3. HYDROCHLORTHIAZID [Concomitant]
  4. ATENOLOLUM [Concomitant]
  5. ESOMEPRAZOLE MAGNESIUM [Concomitant]
  6. ACTONEL [Concomitant]
  7. OXALSOPAN [Concomitant]
  8. ALBUTEROL SULFATE AUTOHALER [Concomitant]
  9. CALCIUM CARBONATE [Concomitant]
  10. NASONEX [Concomitant]

REACTIONS (1)
  - HISTIOCYTOSIS HAEMATOPHAGIC [None]
